FAERS Safety Report 22366358 (Version 1)
Quarter: 2023Q2

REPORT INFORMATION
  Report Type: Spontaneous
  Country: US (occurrence: None)
  Receive Date: 20230524
  Receipt Date: 20230524
  Transmission Date: 20230722
  Serious: Yes (Death, Life-Threatening, Hospitalization, Disabling, Other)
  Sender: FDA-Public Use
  Company Number: None

PATIENT
  Age: 48 Year
  Sex: Male
  Weight: 65.25 kg

DRUGS (7)
  1. ABILIFY [Suspect]
     Active Substance: ARIPIPRAZOLE
     Indication: Insomnia
     Dosage: ORAL
     Route: 048
  2. SEROQUEL [Suspect]
     Active Substance: QUETIAPINE FUMARATE
     Indication: Insomnia
  3. GUNDERSEN [Concomitant]
  4. SEROQUEL [Concomitant]
     Active Substance: QUETIAPINE FUMARATE
  5. MIRTRAPRAZINE [Concomitant]
  6. ZYPREXA [Concomitant]
     Active Substance: OLANZAPINE
  7. LUVOX [Concomitant]
     Active Substance: FLUVOXAMINE MALEATE

REACTIONS (1)
  - Akathisia [None]

NARRATIVE: CASE EVENT DATE: 20221203
